FAERS Safety Report 19048159 (Version 2)
Quarter: 2021Q2

REPORT INFORMATION
  Report Type: Spontaneous
  Country: CA (occurrence: CA)
  Receive Date: 20210324
  Receipt Date: 20210407
  Transmission Date: 20210717
  Serious: Yes (Death, Other)
  Sender: FDA-Public Use
  Company Number: CA-AUROBINDO-AUR-APL-2021-011203

PATIENT
  Age: 34 Year
  Sex: Male

DRUGS (3)
  1. PAROXETINE. [Suspect]
     Active Substance: PAROXETINE
     Indication: PRODUCT USED FOR UNKNOWN INDICATION
     Dosage: UNK
     Route: 065
  2. DIAZEPAM. [Suspect]
     Active Substance: DIAZEPAM
     Indication: PRODUCT USED FOR UNKNOWN INDICATION
     Dosage: UNK
     Route: 065
  3. ALCOHOL. [Suspect]
     Active Substance: ALCOHOL
     Indication: PRODUCT USED FOR UNKNOWN INDICATION
     Dosage: UNK
     Route: 065

REACTIONS (22)
  - Alcohol interaction [Fatal]
  - Blood alcohol increased [Fatal]
  - Hepatic steatosis [Fatal]
  - Shock haemorrhagic [Fatal]
  - Exsanguination [Fatal]
  - Fall [Fatal]
  - Mucosal discolouration [Fatal]
  - Potentiating drug interaction [Fatal]
  - Depressed level of consciousness [Fatal]
  - Accidental death [Fatal]
  - Contusion [Fatal]
  - Subendocardial haemorrhage [Fatal]
  - Hepatomegaly [Fatal]
  - Lividity [Fatal]
  - Pallor [Fatal]
  - Haemorrhage [Fatal]
  - Head injury [Fatal]
  - Skin laceration [Fatal]
  - Subarachnoid haemorrhage [Fatal]
  - Arterial injury [Fatal]
  - Fatty liver alcoholic [Fatal]
  - Arterial rupture [Fatal]
